FAERS Safety Report 5779071-6 (Version None)
Quarter: 2008Q2

REPORT INFORMATION
  Report Type: 
  Country: None (occurrence: None)
  Receive Date: 20080617
  Receipt Date: 20080604
  Transmission Date: 20081010
  Serious: Yes (Hospitalization)
  Sender: FDA-Public Use
  Company Number: 2007BI007552

PATIENT
  Age: 45 Year
  Sex: Female

DRUGS (1)
  1. AVONEX [Suspect]
     Indication: MULTIPLE SCLEROSIS
     Dosage: 30 UG QW IM
     Route: 030
     Dates: start: 19971001

REACTIONS (6)
  - COGNITIVE DISORDER [None]
  - GAIT DISTURBANCE [None]
  - MEMORY IMPAIRMENT [None]
  - NERVOUS SYSTEM DISORDER [None]
  - NIGHT BLINDNESS [None]
  - VISUAL DISTURBANCE [None]
